FAERS Safety Report 25389014 (Version 3)
Quarter: 2025Q2

REPORT INFORMATION
  Report Type: Report from Study
  Country: GB (occurrence: GB)
  Receive Date: 20250603
  Receipt Date: 20250606
  Transmission Date: 20250717
  Serious: Yes (Other)
  Sender: JOHNSON AND JOHNSON
  Company Number: GB-JNJFOC-20250532344

PATIENT

DRUGS (3)
  1. INFLIXIMAB [Suspect]
     Active Substance: INFLIXIMAB
     Indication: Crohn^s disease
     Route: 041
  2. USTEKINUMAB [Suspect]
     Active Substance: USTEKINUMAB
     Indication: Crohn^s disease
     Route: 058
  3. USTEKINUMAB [Suspect]
     Active Substance: USTEKINUMAB
     Indication: Inflammatory bowel disease

REACTIONS (9)
  - Central nervous system infection [Unknown]
  - Urosepsis [Unknown]
  - Lower respiratory tract infection [Unknown]
  - Soft tissue infection [Unknown]
  - Gastrointestinal infection [Unknown]
  - Infection [Unknown]
  - Therapeutic response decreased [Unknown]
  - Upper respiratory tract infection [Unknown]
  - Drug ineffective [Unknown]
